FAERS Safety Report 5282845-1 (Version None)
Quarter: 2007Q1

REPORT INFORMATION
  Report Type: 
  Country: None (occurrence: None)
  Receive Date: 20070329
  Receipt Date: 20070329
  Transmission Date: 20070707
  Serious: Yes (Other)
  Sender: FDA-Public Use
  Company Number: None

PATIENT
  Sex: Male
  Weight: 124.7392 kg

DRUGS (1)
  1. LEVAQUIN [Suspect]
     Indication: URINARY TRACT INFECTION
     Dosage: 1 TAB 24 HOURS PO
     Route: 048
     Dates: start: 20070327, end: 20070328

REACTIONS (9)
  - BLISTER [None]
  - BURNING SENSATION [None]
  - INSOMNIA [None]
  - LIP SWELLING [None]
  - NERVOUS SYSTEM DISORDER [None]
  - RASH [None]
  - RESTLESSNESS [None]
  - SWOLLEN TONGUE [None]
  - URTICARIA [None]
